FAERS Safety Report 23213767 (Version 4)
Quarter: 2024Q2

REPORT INFORMATION
  Report Type: Spontaneous
  Country: US (occurrence: US)
  Receive Date: 20231121
  Receipt Date: 20240502
  Transmission Date: 20240716
  Serious: Yes (Other)
  Sender: FDA-Public Use
  Company Number: US-BRISTOL-MYERS SQUIBB COMPANY-2023-167766

PATIENT
  Age: 76 Year
  Sex: Male

DRUGS (2)
  1. LENALIDOMIDE [Suspect]
     Active Substance: LENALIDOMIDE
     Indication: Plasma cell myeloma
     Dosage: TAKE 1 CAPSULE (10MG TOTAL) BY MOUTH EVERY DAY FOR 21 DAYS OF 28 DAY CYCLE
     Route: 048
     Dates: start: 20221118
  2. LENALIDOMIDE [Suspect]
     Active Substance: LENALIDOMIDE
     Indication: Plasma cell myeloma in remission
     Dosage: TAKE 1 CAPSULE (10MG TOTAL) BY MOUTH EVERY DAY FOR 21 DAYS OF 28 DAY CYCLE
     Route: 048
     Dates: start: 20221118

REACTIONS (4)
  - Cough [Recovering/Resolving]
  - Sinusitis [Recovering/Resolving]
  - COVID-19 [Recovered/Resolved]
  - Platelet count decreased [Recovered/Resolved]
